FAERS Safety Report 6480446-0 (Version None)
Quarter: 2009Q4

REPORT INFORMATION
  Report Type: 
  Country: None (occurrence: None)
  Receive Date: 20091203
  Receipt Date: 20091118
  Transmission Date: 20100525
  Serious: Yes (Hospitalization)
  Sender: FDA-Public Use
  Company Number: STI-2009-03118

PATIENT
  Age: 72 Year
  Sex: Female
  Weight: 62.1428 kg

DRUGS (1)
  1. 687A IMPRUV DRY SKIN CARE VITAMINS(DERMAVITE) (MULTIPLE VITAMINS) (TAB [Suspect]
     Indication: VITAMIN SUPPLEMENTATION
     Dosage: 1 IN 1 DAYS, ORAL
     Route: 048
     Dates: start: 20090901, end: 20091112

REACTIONS (2)
  - ATRIAL FIBRILLATION [None]
  - CONSTIPATION [None]
